FAERS Safety Report 23830785 (Version 1)
Quarter: 2024Q2

REPORT INFORMATION
  Report Type: Spontaneous
  Country: DE (occurrence: DE)
  Receive Date: 20240508
  Receipt Date: 20240508
  Transmission Date: 20240716
  Serious: Yes (Other)
  Sender: FDA-Public Use
  Company Number: DE-Boehringer Ingelheim GmbH, Germany-2010-DE-06766DE

PATIENT
  Age: 18 Year
  Sex: Female
  Weight: 47 kg

DRUGS (10)
  1. DOXYCYCLINE HYCLATE [Suspect]
     Active Substance: DOXYCYCLINE HYCLATE
     Dosage: ONCE 10 TABLETS
     Route: 048
  2. RAMIPRIL [Suspect]
     Active Substance: RAMIPRIL
     Dosage: ONCE 20 TABLETS
     Route: 048
  3. DULCOLAX (BISACODYL) [Suspect]
     Active Substance: BISACODYL
     Dosage: UNK
     Route: 048
  4. ACETAMINOPHEN\CODEINE PHOSPHATE [Suspect]
     Active Substance: ACETAMINOPHEN\CODEINE PHOSPHATE
     Dosage: ONCE 20 TABLETS
     Route: 048
  5. AMITRIPTYLINE [Suspect]
     Active Substance: AMITRIPTYLINE
     Dosage: ONCE 10 TABLETS
     Route: 048
  6. ASPIRIN [Suspect]
     Active Substance: ASPIRIN
     Dosage: ONCE 4 TABLETS
     Route: 048
  7. MELOXICAM [Suspect]
     Active Substance: MELOXICAM
     Dosage: ONCE 8 TABLETS
     Route: 048
  8. ALBUTEROL [Suspect]
     Active Substance: ALBUTEROL
     Dosage: ONCE 10 TABLETS
     Route: 048
  9. ACETAMINOPHEN [Suspect]
     Active Substance: ACETAMINOPHEN
     Dosage: ONCE 6 TABLETS
     Route: 048
  10. IBUPROFEN [Suspect]
     Active Substance: IBUPROFEN
     Dosage: ONCE 15 TABLETS
     Route: 048

REACTIONS (5)
  - Intentional overdose [Unknown]
  - Suicide attempt [Unknown]
  - Vomiting [Unknown]
  - Tachycardia [Unknown]
  - Gastrointestinal sounds abnormal [Unknown]
